FAERS Safety Report 5605567-3 (Version None)
Quarter: 2008Q1

REPORT INFORMATION
  Report Type: 
  Country: None (occurrence: None)
  Receive Date: 20080129
  Receipt Date: 20080124
  Transmission Date: 20080703
  Serious: Yes (Hospitalization)
  Sender: FDA-Public Use
  Company Number: ID-JNJFOC-20071205480

PATIENT
  Sex: Male
  Weight: 57 kg

DRUGS (4)
  1. RISPERIDONE LAI [Suspect]
     Indication: BIPOLAR I DISORDER
     Route: 030
  2. RISPERIDONE [Suspect]
     Indication: BIPOLAR DISORDER
  3. SEROQUEL [Suspect]
     Indication: BIPOLAR DISORDER
  4. GLUCOPHAGE [Concomitant]
     Indication: DIABETES MELLITUS

REACTIONS (5)
  - AGGRESSION [None]
  - DELUSION [None]
  - DIABETES MELLITUS INADEQUATE CONTROL [None]
  - HEPATITIS [None]
  - IRRITABILITY [None]
